FAERS Safety Report 23606740 (Version 1)
Quarter: 2024Q1

REPORT INFORMATION
  Report Type: Spontaneous
  Country: US (occurrence: None)
  Receive Date: 20240307
  Receipt Date: 20240307
  Transmission Date: 20240409
  Serious: Yes (Other)
  Sender: FDA-Public Use
  Company Number: None

PATIENT
  Age: 60 Year
  Sex: Female

DRUGS (6)
  1. REPATHA [Suspect]
     Active Substance: EVOLOCUMAB
     Indication: Blood cholesterol increased
     Dosage: OTHER QUANTITY : 1 INJECTION(S);?OTHER FREQUENCY : 1/2 WEEK;?OTHER ROUTE : ABDOMEN INJECTION;?
     Route: 050
     Dates: start: 20240128, end: 20240225
  2. ESTRADIOL [Concomitant]
     Active Substance: ESTRADIOL
  3. PROGESTERONE [Concomitant]
     Active Substance: PROGESTERONE
  4. ASPIRIN [Concomitant]
     Active Substance: ASPIRIN
  5. VITAMIN D NOS [Concomitant]
     Active Substance: VITAMIN D NOS
  6. COENZYME Q10 [Concomitant]
     Active Substance: DIETARY SUPPLEMENT\UBIDECARENONE

REACTIONS (9)
  - Nasopharyngitis [None]
  - Influenza [None]
  - Headache [None]
  - Neck pain [None]
  - Oropharyngeal pain [None]
  - Pulmonary congestion [None]
  - Fatigue [None]
  - Muscular weakness [None]
  - Therapy non-responder [None]

NARRATIVE: CASE EVENT DATE: 20240213
